FAERS Safety Report 8078888-5 (Version None)
Quarter: 2012Q1

REPORT INFORMATION
  Report Type: 
  Country: None (occurrence: None)
  Receive Date: 20120124
  Receipt Date: 20120109
  Transmission Date: 20120608
  Serious: Yes (Death)
  Sender: FDA-Public Use
  Company Number: DSA_81740_2006

PATIENT
  Age: 58 Year
  Sex: Female
  Weight: 58.9676 kg

DRUGS (9)
  1. KLONOPIN [Concomitant]
  2. MEPROBAMATE [Suspect]
     Indication: INSOMNIA
     Dosage: (VAR), ORAL
     Route: 048
  3. XYREM [Suspect]
     Indication: INSOMNIA
     Dosage: (DF), ORAL
     Route: 048
     Dates: start: 20051027, end: 20050101
  4. LIDOCAINE [Suspect]
     Indication: PAIN
     Dosage: PARENTERAL
     Route: 051
  5. NON-STEROIDAL ANTI-INFLAMMATORY DRUG [Suspect]
     Indication: PRODUCT USED FOR UNKNOWN INDICATION
  6. TRAZODONE HCL [Suspect]
     Indication: PRODUCT USED FOR UNKNOWN INDICATION
     Dosage: (VAR, QHS), ORAL
     Route: 048
  7. PROZAC [Suspect]
     Indication: DEPRESSION
     Dosage: (VAR), ORAL
     Route: 048
  8. PSEUDOEPHEDRINE HCL [Suspect]
     Indication: PRODUCT USED FOR UNKNOWN INDICATION
  9. OTHER UNSPECIFIED DRUGS, MEDICAMENTS, AND BIOLOGICAL SUBSTANCES [Suspect]
     Indication: PRODUCT USED FOR UNKNOWN INDICATION

REACTIONS (4)
  - COLITIS [None]
  - ACCIDENTAL POISONING [None]
  - ACCIDENTAL OVERDOSE [None]
  - ARTERIOSCLEROSIS CORONARY ARTERY [None]
